FAERS Safety Report 9702139 (Version 4)
Quarter: 2015Q1

REPORT INFORMATION
  Report Type: Spontaneous
  Country: JP (occurrence: JP)
  Receive Date: 20131121
  Receipt Date: 20150130
  Transmission Date: 20150721
  Serious: Yes (Death, Life-Threatening, Hospitalization)
  Sender: FDA-Public Use
  Company Number: JP-BRISTOL-MYERS SQUIBB COMPANY-19829720

PATIENT
  Age: 90 Year
  Sex: Female
  Weight: 37 kg

DRUGS (6)
  1. FLUCAM [Concomitant]
     Active Substance: AMPIROXICAM
     Indication: PRODUCT USED FOR UNKNOWN INDICATION
     Dosage: UNK
     Route: 048
  2. 5-FLUOROURACIL [Concomitant]
     Active Substance: FLUOROURACIL
     Indication: TONGUE NEOPLASM MALIGNANT STAGE UNSPECIFIED
     Dosage: 5 TIMES (750 MG)
     Route: 041
     Dates: start: 20131030, end: 20131102
  3. CARBOPLATIN. [Suspect]
     Active Substance: CARBOPLATIN
     Indication: TONGUE NEOPLASM MALIGNANT STAGE UNSPECIFIED
     Dosage: 250 MG, QWK
     Route: 041
     Dates: start: 20131029
  4. DECADRON [Concomitant]
     Active Substance: DEXAMETHASONE
     Indication: PROPHYLAXIS
     Dosage: 4 TIMES (0.6 MG)
     Route: 041
     Dates: start: 20131029, end: 20131101
  5. CHLOR-TRIMETON [Concomitant]
     Active Substance: CHLORPHENIRAMINE MALEATE
     Indication: PROPHYLAXIS
     Dosage: 10 MG, QWK
     Route: 041
     Dates: start: 20131029, end: 20131105
  6. ERBITUX [Suspect]
     Active Substance: CETUXIMAB
     Indication: TONGUE NEOPLASM MALIGNANT STAGE UNSPECIFIED
     Dosage: LAST DOSE 200MG,1 IN 1WEEK,05NOV13
     Route: 041
     Dates: start: 20131029

REACTIONS (6)
  - Nausea [Unknown]
  - Septic shock [Fatal]
  - Gastrointestinal perforation [Fatal]
  - Constipation [Recovered/Resolved]
  - Decreased appetite [Unknown]
  - Vomiting [Unknown]

NARRATIVE: CASE EVENT DATE: 20131101
